FAERS Safety Report 17147112 (Version 1)
Quarter: 2019Q4

REPORT INFORMATION
  Report Type: Spontaneous
  Country: NL (occurrence: NL)
  Receive Date: 20191212
  Receipt Date: 20191212
  Transmission Date: 20200122
  Serious: Yes (Death, Hospitalization)
  Sender: FDA-Public Use
  Company Number: NL-ACCORD-164359

PATIENT
  Sex: Male
  Weight: 2 kg

DRUGS (15)
  1. CEFAZOLIN [Concomitant]
     Active Substance: CEFAZOLIN
  2. THIAMINE. [Concomitant]
     Active Substance: THIAMINE
  3. TEMAZEPAM. [Concomitant]
     Active Substance: TEMAZEPAM
  4. NADROPARIN [Concomitant]
     Active Substance: NADROPARIN
  5. METOCLOPRAMIDE. [Concomitant]
     Active Substance: METOCLOPRAMIDE
  6. FLUOROURACIL. [Suspect]
     Active Substance: FLUOROURACIL
     Dosage: 2400 MG/M2
  7. PREGABALIN. [Concomitant]
     Active Substance: PREGABALIN
  8. LIDOCAINE. [Concomitant]
     Active Substance: LIDOCAINE
  9. ONDANSETRON [Concomitant]
     Active Substance: ONDANSETRON
  10. AMITRIPTYLINE [Concomitant]
     Active Substance: AMITRIPTYLINE
  11. FENTANYL. [Concomitant]
     Active Substance: FENTANYL
  12. MORPHINE [Concomitant]
     Active Substance: MORPHINE
  13. DEXAMETHASONE. [Concomitant]
     Active Substance: DEXAMETHASONE
  14. OXALIPLATIN. [Suspect]
     Active Substance: OXALIPLATIN
     Dosage: 85 MG/M3
  15. CARBOHYDRATES NOS/LIPIDS NOS/PROTEINS NOS [Concomitant]
     Dosage: (TUBE FEEDING)

REACTIONS (2)
  - Cerebral haemorrhage neonatal [Fatal]
  - Foetal exposure during pregnancy [Unknown]
